FAERS Safety Report 7404279-3 (Version None)
Quarter: 2011Q2

REPORT INFORMATION
  Report Type: 
  Country: None (occurrence: None)
  Receive Date: 20110408
  Receipt Date: 20110406
  Transmission Date: 20111010
  Serious: Yes (Death)
  Sender: FDA-Public Use
  Company Number: BR-GILEAD-2011-0038265

PATIENT
  Sex: Male
  Weight: 55 kg

DRUGS (7)
  1. LAMIVUDINE [Concomitant]
     Indication: HIV INFECTION
     Route: 048
     Dates: start: 20110110, end: 20110306
  2. ACETYLSALICYLIC ACID SRT [Concomitant]
     Indication: ISCHAEMIC HEART DISEASE PROPHYLAXIS
     Dates: start: 20110112, end: 20110206
  3. ATORVASTATIN CALCIUM [Concomitant]
     Indication: VENTRICULAR DYSFUNCTION
     Dates: start: 20110112, end: 20110206
  4. CLOPIDOGREL [Concomitant]
     Indication: VENTRICULAR DYSFUNCTION
     Dates: start: 20110114, end: 20110206
  5. ENALAPRIL MALEATE [Concomitant]
     Indication: VENTRICULAR DYSFUNCTION
     Dates: start: 20110214
  6. VIREAD [Suspect]
     Indication: HIV INFECTION
     Dates: start: 20110110, end: 20110306
  7. KALETRA [Concomitant]
     Indication: HIV INFECTION
     Dates: start: 20110103, end: 20110206

REACTIONS (1)
  - DEATH [None]
